FAERS Safety Report 9968137 (Version 1)
Quarter: 2014Q1

REPORT INFORMATION
  Report Type: Report from Study
  Country: US (occurrence: US)
  Receive Date: 20140306
  Receipt Date: 20140306
  Transmission Date: 20141002
  Serious: No
  Sender: FDA-Public Use
  Company Number: US-ABBVIE-13P-163-1142332-00

PATIENT
  Age: 68 Year
  Sex: Female

DRUGS (6)
  1. HUMIRA [Suspect]
     Indication: CROHN^S DISEASE
     Dates: start: 20130605
  2. ENTOCORT [Concomitant]
     Indication: CROHN^S DISEASE
  3. CELEXA [Concomitant]
     Indication: ANXIETY
  4. XANAX [Concomitant]
     Indication: INSOMNIA
     Dosage: AT NIGHT
  5. MULTIVITAMIN [Concomitant]
     Indication: SUPPLEMENTATION THERAPY
  6. IMODIUM [Concomitant]
     Indication: CROHN^S DISEASE
     Dosage: 1-2 DAILY

REACTIONS (2)
  - Constipation [Recovered/Resolved]
  - Nausea [Not Recovered/Not Resolved]
